FAERS Safety Report 23555203 (Version 2)
Quarter: 2024Q3

REPORT INFORMATION
  Report Type: Spontaneous
  Country: US (occurrence: US)
  Receive Date: 20240222
  Receipt Date: 20240807
  Transmission Date: 20241017
  Serious: Yes (Other)
  Sender: ABBVIE
  Company Number: US-ABBVIE-5649887

PATIENT
  Sex: Male

DRUGS (6)
  1. LUPRON [Suspect]
     Active Substance: LEUPROLIDE ACETATE
     Indication: Product used for unknown indication
     Route: 065
  2. ZYTIGA [Concomitant]
     Active Substance: ABIRATERONE ACETATE
     Indication: Product used for unknown indication
  3. ENZALUTAMIDE [Suspect]
     Active Substance: ENZALUTAMIDE
     Indication: Prostate cancer metastatic
     Dosage: FORM STRENGTH: 40 MILLIGRAM
     Route: 048
     Dates: start: 20211117
  4. ENZALUTAMIDE [Suspect]
     Active Substance: ENZALUTAMIDE
     Indication: Prostate cancer metastatic
     Dosage: DRUG END DATE-2022,  FORM STRENGTH: 40 MILLIGRAM
     Route: 048
     Dates: start: 202203
  5. ENZALUTAMIDE [Suspect]
     Active Substance: ENZALUTAMIDE
     Indication: Prostate cancer metastatic
     Dosage: FORM STRENGTH: 40 MILLIGRAM
     Route: 048
     Dates: start: 20231103
  6. ENZALUTAMIDE [Suspect]
     Active Substance: ENZALUTAMIDE
     Indication: Prostate cancer metastatic
     Dosage: DRUG END DATE-2022, FORM STRENGTH: 40 MILLIGRAM
     Route: 048
     Dates: start: 20220506

REACTIONS (10)
  - Neoplasm [Not Recovered/Not Resolved]
  - Fatigue [Unknown]
  - Blood pressure increased [Recovered/Resolved]
  - Myalgia [Not Recovered/Not Resolved]
  - Hot flush [Unknown]
  - Therapeutic product effect incomplete [Not Recovered/Not Resolved]
  - Brain fog [Not Recovered/Not Resolved]
  - Arthralgia [Not Recovered/Not Resolved]
  - Apathy [Not Recovered/Not Resolved]
  - COVID-19 [Unknown]
